FAERS Safety Report 8300461-1 (Version None)
Quarter: 2012Q2

REPORT INFORMATION
  Report Type: 
  Country: None (occurrence: None)
  Receive Date: 20120417
  Receipt Date: 20120405
  Transmission Date: 20120825
  Serious: Yes (Life-Threatening, Hospitalization)
  Sender: FDA-Public Use
  Company Number: 2012ST000351

PATIENT
  Age: 76 Year
  Sex: Female
  Weight: 58.7 kg

DRUGS (6)
  1. PREDNISONE [Concomitant]
  2. RITUXIMAB [Concomitant]
  3. ETOPOSIDE [Concomitant]
  4. CYTOXAN [Concomitant]
  5. NEULASTA [Concomitant]
  6. MATULANE [Suspect]
     Indication: DIFFUSE LARGE B-CELL LYMPHOMA
     Dosage: 100 MG;QD;PO
     Route: 048
     Dates: start: 20120322, end: 20120331

REACTIONS (4)
  - ENTEROCOCCAL BACTERAEMIA [None]
  - FEBRILE NEUTROPENIA [None]
  - HYPOTENSION [None]
  - ATRIAL FIBRILLATION [None]
